FAERS Safety Report 8242335-0 (Version None)
Quarter: 2012Q1

REPORT INFORMATION
  Report Type: 
  Country: None (occurrence: None)
  Receive Date: 20120314
  Receipt Date: 20110728
  Transmission Date: 20120608
  Serious: Yes (Hospitalization)
  Sender: FDA-Public Use
  Company Number: PHHY2011US48551

PATIENT
  Sex: Male

DRUGS (2)
  1. FANAPT [Suspect]
     Dosage: 4 MG, BID, ORAL
     Route: 048
  2. TRAZODONE HCL [Concomitant]

REACTIONS (1)
  - PRIAPISM [None]
